FAERS Safety Report 18383641 (Version 2)
Quarter: 2020Q4

REPORT INFORMATION
  Report Type: Spontaneous
  Country: DE (occurrence: DE)
  Receive Date: 20201014
  Receipt Date: 20201020
  Transmission Date: 20210114
  Serious: Yes (Other)
  Sender: FDA-Public Use
  Company Number: DE-MYLANLABS-2020M1086227

PATIENT
  Age: 14 Year
  Sex: Female

DRUGS (9)
  1. CISPLATIN. [Suspect]
     Active Substance: CISPLATIN
     Indication: OSTEOSARCOMA
     Dosage: UNK (FROM 10 WEEKS PRIOR TO SURGERY UP TO 14 WEEKS POST SURGERY)
     Route: 065
  2. METHOTREXATE. [Suspect]
     Active Substance: METHOTREXATE
     Dosage: UP TO 14 WEEKS POST-SURGERY
     Route: 065
  3. IFOSFAMIDE. [Suspect]
     Active Substance: IFOSFAMIDE
     Indication: OSTEOSARCOMA
     Dosage: UNK (FROM 10 WEEKS PRIOR TO SURGERY UP TO 14 WEEKS POST SURGERY)
  4. HOLOXAN [Suspect]
     Active Substance: IFOSFAMIDE
     Indication: OSTEOSARCOMA
     Dosage: UNK (FROM 10 WEEKS PRIOR TO SURGERY UP TO 14 WEEKS POST-SURGERY)
     Route: 065
  5. METHOTREXATE. [Suspect]
     Active Substance: METHOTREXATE
     Indication: OSTEOSARCOMA
     Dosage: UNK (FROM 10 WEEKS PRIOR TO SURGERY UP TO 14 WEEKS POST SURGERY)
     Route: 065
  6. HOLOXAN [Suspect]
     Active Substance: IFOSFAMIDE
     Dosage: UNK, UP TO 14 WEEKS POST-SURGERY
     Route: 065
  7. ADRIAMYCIN [Suspect]
     Active Substance: DOXORUBICIN HYDROCHLORIDE
     Indication: OSTEOSARCOMA
     Dosage: UNK (FROM 10 WEEKS PRIOR TO SURGERY UP TO 14 WEEKS POST SURGERY)
     Route: 065
  8. ADRIAMYCIN [Suspect]
     Active Substance: DOXORUBICIN HYDROCHLORIDE
     Dosage: (UP TO 14 WEEKS POST-SURGERY)
  9. CISPLATIN. [Suspect]
     Active Substance: CISPLATIN
     Dosage: (UP TO 14 WEEKS POST-SURGERY)

REACTIONS (3)
  - Osteonecrosis [Recovered/Resolved]
  - Renal tubular injury [Unknown]
  - Renal tubular disorder [Unknown]
